FAERS Safety Report 16097873 (Version 2)
Quarter: 2019Q2

REPORT INFORMATION
  Report Type: Report from Study
  Country: US (occurrence: US)
  Receive Date: 20190320
  Receipt Date: 20190401
  Transmission Date: 20190711
  Serious: Yes (Death, Hospitalization)
  Sender: FDA-Public Use
  Company Number: US-TAKEDA-2018TUS004126

PATIENT
  Age: 52 Year
  Sex: Male

DRUGS (3)
  1. PONATINIB [Suspect]
     Active Substance: PONATINIB
     Indication: ACUTE LYMPHOCYTIC LEUKAEMIA
     Dosage: 45 MILLIGRAM, QD
     Route: 048
     Dates: start: 20180201
  2. PONATINIB [Suspect]
     Active Substance: PONATINIB
     Dosage: 15 MILLIGRAM, QD
     Route: 048
     Dates: start: 201812
  3. PONATINIB [Suspect]
     Active Substance: PONATINIB
     Dosage: 30 MILLIGRAM, QD
     Route: 048

REACTIONS (12)
  - Neoplasm progression [Unknown]
  - Nausea [Unknown]
  - Death [Fatal]
  - Blood pressure decreased [Unknown]
  - Oxygen saturation decreased [Unknown]
  - Cough [Unknown]
  - Asthenia [Unknown]
  - Neuralgia [Unknown]
  - Pneumonitis [Unknown]
  - Rash [Unknown]
  - Pneumonia [Unknown]
  - Urinary retention [Unknown]

NARRATIVE: CASE EVENT DATE: 201810
